FAERS Safety Report 6165808-3 (Version None)
Quarter: 2009Q2

REPORT INFORMATION
  Report Type: 
  Country: None (occurrence: None)
  Receive Date: 20090422
  Receipt Date: 20090408
  Transmission Date: 20091009
  Serious: Yes (Life-Threatening, Hospitalization)
  Sender: FDA-Public Use
  Company Number: 2009S1006558

PATIENT
  Age: 69 Year
  Sex: Female

DRUGS (2)
  1. METFORMIN HCL [Suspect]
     Indication: TYPE 2 DIABETES MELLITUS
     Dosage: ORAL
     Route: 048
     Dates: end: 20080701
  2. RAMIPRIL [Concomitant]

REACTIONS (3)
  - DIARRHOEA [None]
  - LACTIC ACIDOSIS [None]
  - RENAL FAILURE ACUTE [None]
